FAERS Safety Report 9542542 (Version 3)
Quarter: 2013Q4

REPORT INFORMATION
  Report Type: Spontaneous
  Country: US (occurrence: US)
  Receive Date: 20130923
  Receipt Date: 20131003
  Transmission Date: 20140711
  Serious: No
  Sender: FDA-Public Use
  Company Number: US-VERTEX PHARMACEUTICALS INC-2013-009717

PATIENT
  Age: 49 Year
  Sex: Female
  Weight: 87.98 kg

DRUGS (6)
  1. INCIVEK [Suspect]
     Indication: HEPATITIS C
     Dosage: 750 MG, TID
     Route: 048
     Dates: start: 20130909
  2. RIBAVIRIN [Suspect]
     Indication: HEPATITIS C
     Dosage: 600 MG, BID
     Route: 048
     Dates: start: 20130909
  3. PEGASYS [Suspect]
     Indication: HEPATITIS C
     Dosage: 180 ?G, QW
     Route: 058
     Dates: start: 20130909
  4. IRON [Concomitant]
  5. MULTIVITAMIN [Concomitant]
  6. FOLIC ACID [Concomitant]

REACTIONS (10)
  - Eye irritation [Recovered/Resolved]
  - Chills [Recovered/Resolved]
  - Sunburn [Recovered/Resolved]
  - Oral pain [Recovered/Resolved]
  - Tongue discolouration [Recovered/Resolved]
  - Fatigue [Recovered/Resolved]
  - Anorectal discomfort [Not Recovered/Not Resolved]
  - Proctalgia [Not Recovered/Not Resolved]
  - Rectal haemorrhage [Not Recovered/Not Resolved]
  - Pruritus [Recovered/Resolved]
